FAERS Safety Report 17298764 (Version 1)
Quarter: 2020Q1

REPORT INFORMATION
  Report Type: Spontaneous
  Country: US (occurrence: US)
  Receive Date: 20200122
  Receipt Date: 20200122
  Transmission Date: 20200409
  Serious: No
  Sender: FDA-Public Use
  Company Number: US-MYLANLABS-2020M1002569

PATIENT
  Age: 68 Year
  Sex: Female
  Weight: 56.7 kg

DRUGS (1)
  1. LIDOCAINE PATCH [Suspect]
     Active Substance: LIDOCAINE
     Indication: FIBROMYALGIA
     Dosage: 5 PERCENT

REACTIONS (2)
  - Product adhesion issue [Unknown]
  - Off label use [Unknown]
